FAERS Safety Report 22007019 (Version 2)
Quarter: 2023Q1

REPORT INFORMATION
  Report Type: Spontaneous
  Country: US (occurrence: US)
  Receive Date: 20230217
  Receipt Date: 20230327
  Transmission Date: 20230418
  Serious: No
  Sender: FDA-Public Use
  Company Number: US-BAYER-2023P009006

PATIENT
  Age: 51 Year
  Sex: Female
  Weight: 76.2 kg

DRUGS (6)
  1. MIRENA [Suspect]
     Active Substance: LEVONORGESTREL
     Indication: Polymenorrhagia
     Dosage: 20?G/DAY
     Route: 015
     Dates: start: 20200220, end: 20230213
  2. MIRENA [Suspect]
     Active Substance: LEVONORGESTREL
     Indication: Intrauterine contraception
  3. POLYMYXIN B SULFATE [Concomitant]
     Active Substance: POLYMYXIN B SULFATE
  4. DIETARY SUPPLEMENT\HERBALS\INDIAN FRANKINCENSE [Concomitant]
     Active Substance: DIETARY SUPPLEMENT\HERBALS\INDIAN FRANKINCENSE
  5. VITAMINS [Concomitant]
     Active Substance: VITAMINS
  6. MISOPROSTOL [Concomitant]
     Active Substance: MISOPROSTOL

REACTIONS (2)
  - Medical device pain [None]
  - Device dislocation [Recovered/Resolved]

NARRATIVE: CASE EVENT DATE: 20230203
